FAERS Safety Report 10946144 (Version 2)
Quarter: 2015Q1

REPORT INFORMATION
  Report Type: Spontaneous
  Country: IT (occurrence: IT)
  Receive Date: 20150323
  Receipt Date: 20150331
  Transmission Date: 20150721
  Serious: Yes (Other)
  Sender: FDA-Public Use
  Company Number: IT-TEVA-548592ACC

PATIENT
  Age: 65 Year
  Sex: Female

DRUGS (2)
  1. CLOPIDOGREL [Suspect]
     Active Substance: CLOPIDOGREL BISULFATE
     Indication: THROMBOSIS PROPHYLAXIS
     Dosage: 1 DOSAGE FORMS DAILY; 1 DF DAILY
     Route: 048
     Dates: start: 20150228, end: 20150301
  2. COVERLAM - 5 MG/5 MG COMPRESSE - LES LABORATOIRES SERVIER [Suspect]
     Active Substance: AMLODIPINE\PERINDOPRIL
     Indication: HYPERTENSION
     Dosage: 1 DOSAGE FORMS DAILY; 1 DF DAILY
     Route: 048
     Dates: start: 20150228, end: 20150301

REACTIONS (5)
  - Lip oedema [Recovered/Resolved]
  - Throat tightness [Recovered/Resolved]
  - Pharyngeal oedema [Recovered/Resolved]
  - Drug hypersensitivity [Recovered/Resolved]
  - Feeling hot [Recovered/Resolved]

NARRATIVE: CASE EVENT DATE: 20150301
